FAERS Safety Report 18104416 (Version 1)
Quarter: 2020Q3

REPORT INFORMATION
  Report Type: Spontaneous
  Country: US (occurrence: US)
  Receive Date: 20200803
  Receipt Date: 20200803
  Transmission Date: 20201103
  Serious: Yes (Hospitalization)
  Sender: FDA-Public Use
  Company Number: None

PATIENT
  Sex: Female

DRUGS (19)
  1. AMITRIPTYLIN [Concomitant]
     Active Substance: AMITRIPTYLINE
     Dates: start: 20200106
  2. CELECOXIB. [Concomitant]
     Active Substance: CELECOXIB
     Dates: start: 20200706
  3. FOLIC ACID. [Concomitant]
     Active Substance: FOLIC ACID
     Dates: start: 20200325
  4. NAPROXEN. [Concomitant]
     Active Substance: NAPROXEN
     Dates: start: 20191230
  5. SMZ/TMP DS [Concomitant]
     Active Substance: SULFAMETHOXAZOLE\TRIMETHOPRIM
     Dates: start: 20200716
  6. VITAMIN D [Concomitant]
     Active Substance: VITAMIN D NOS
     Dates: start: 20200416
  7. APAP/CODEINE [Concomitant]
     Active Substance: ACETAMINOPHEN\CODEINE PHOSPHATE
     Dates: start: 20200605
  8. MELOXICAM. [Concomitant]
     Active Substance: MELOXICAM
     Dates: start: 20200419
  9. METFORMIN [Concomitant]
     Active Substance: METFORMIN HYDROCHLORIDE
     Dates: start: 20200415
  10. LISINOPRIL AND HYDROCHLOROTHIAZIDE [Concomitant]
     Active Substance: HYDROCHLOROTHIAZIDE\LISINOPRIL
     Dates: start: 20200408
  11. DULOXETINE. [Concomitant]
     Active Substance: DULOXETINE
     Dates: start: 20200210
  12. GABAPENTIN. [Concomitant]
     Active Substance: GABAPENTIN
     Dates: start: 20200321
  13. LINZESS [Concomitant]
     Active Substance: LINACLOTIDE
     Dates: start: 20200416
  14. TIZANIDINE. [Concomitant]
     Active Substance: TIZANIDINE
     Dates: start: 20200210
  15. COSENTYX [Suspect]
     Active Substance: SECUKINUMAB
     Indication: PSORIASIS
     Dosage: ?          OTHER FREQUENCY:EVERY 4 WEEKS;?
     Route: 058
     Dates: start: 20190514
  16. METHOCARBAM [Concomitant]
     Active Substance: METHOCARBAMOL
     Dates: start: 20200605
  17. ROPINIROLE. [Concomitant]
     Active Substance: ROPINIROLE
     Dates: start: 20200419
  18. METHOTREXATE. [Concomitant]
     Active Substance: METHOTREXATE
     Dates: start: 20200213
  19. SPIRONOLACT [Concomitant]
     Active Substance: SPIRONOLACTONE
     Dates: start: 20200408

REACTIONS (5)
  - Localised infection [None]
  - Psoriasis [None]
  - Therapy interrupted [None]
  - Knee arthroplasty [None]
  - Trigger finger [None]
